FAERS Safety Report 4682985-1 (Version None)
Quarter: 2005Q2

REPORT INFORMATION
  Report Type: 
  Country: None (occurrence: None)
  Receive Date: 20050602
  Receipt Date: 20050322
  Transmission Date: 20051028
  Serious: No
  Sender: FDA-Public Use
  Company Number: USA050393795

PATIENT
  Age: 41 Year
  Sex: Female

DRUGS (4)
  1. CYMBALTA [Suspect]
     Indication: NERVOUS SYSTEM DISORDER
     Dosage: 30 MG
     Dates: start: 20050321, end: 20050322
  2. NORVASC [Concomitant]
  3. NADOLOL [Concomitant]
  4. ACETAMINOPHEN AND HYDROCODONE BITARTRATE [Concomitant]

REACTIONS (5)
  - ERYTHEMA [None]
  - HEADACHE [None]
  - MALAISE [None]
  - MUSCULAR WEAKNESS [None]
  - SWELLING FACE [None]
